FAERS Safety Report 24978171 (Version 1)
Quarter: 2025Q1

REPORT INFORMATION
  Report Type: Spontaneous
  Country: IL (occurrence: IL)
  Receive Date: 20250217
  Receipt Date: 20250217
  Transmission Date: 20250409
  Serious: Yes (Hospitalization)
  Sender: NOVARTIS
  Company Number: IL-002147023-NVSC2024IL026471

PATIENT
  Age: 66 Year
  Sex: Female

DRUGS (3)
  1. PIQRAY [Suspect]
     Active Substance: ALPELISIB
     Indication: Breast cancer metastatic
     Dosage: 150 MG, QD (A MONTH AND A HALF AGO)
     Route: 048
     Dates: start: 20231020
  2. PIQRAY [Suspect]
     Active Substance: ALPELISIB
     Route: 065
  3. COSENTYX [Suspect]
     Active Substance: SECUKINUMAB
     Indication: Psoriatic arthropathy
     Route: 065
     Dates: end: 202409

REACTIONS (10)
  - Diarrhoea [Not Recovered/Not Resolved]
  - Pruritus [Recovering/Resolving]
  - Psoriasis [Recovering/Resolving]
  - Rash [Not Recovered/Not Resolved]
  - Eating disorder [Not Recovered/Not Resolved]
  - Nausea [Not Recovered/Not Resolved]
  - Weight increased [Unknown]
  - Oedema peripheral [Not Recovered/Not Resolved]
  - Cellulite [Not Recovered/Not Resolved]
  - Fatigue [Unknown]
